FAERS Safety Report 20373717 (Version 1)
Quarter: 2022Q1

REPORT INFORMATION
  Report Type: Spontaneous
  Country: US (occurrence: US)
  Receive Date: 20220125
  Receipt Date: 20220125
  Transmission Date: 20220424
  Serious: Yes (Other)
  Sender: FDA-Public Use
  Company Number: US-ORG100016242-2022000017

PATIENT

DRUGS (21)
  1. EXPAREL [Suspect]
     Active Substance: BUPIVACAINE
     Dosage: 10 ML OF 133 MG ADMIXED WITH 5 ML OF 0.5% BUPIVACAINE
     Route: 065
  2. BUPIVACAINE [Suspect]
     Active Substance: BUPIVACAINE
     Dosage: ADMIXED WITH 10 ML OF 133 MG LIPOSOMAL BUPIVACAINE
     Route: 065
  3. MIDAZOLAM [Concomitant]
     Active Substance: MIDAZOLAM
     Dosage: 2 TO 5 MG
     Route: 042
  4. PROPOFOL [Concomitant]
     Active Substance: PROPOFOL
     Route: 065
  5. FENTANYL [Concomitant]
     Active Substance: FENTANYL
     Dosage: 25 TO 50 ?G TITRATED UP TO 200 ?G
     Route: 065
  6. DEXAMETHASONE [Concomitant]
     Active Substance: DEXAMETHASONE
     Route: 065
  7. ONDANSETRON [Concomitant]
     Active Substance: ONDANSETRON
     Dosage: INTRAOPERATIVE
     Route: 065
  8. ONDANSETRON [Concomitant]
     Active Substance: ONDANSETRON
     Dosage: EVERY 8 H AS NEEDED AT DISCHARGE
     Route: 065
  9. KETOROLAC [Concomitant]
     Active Substance: KETOROLAC TROMETHAMINE
     Dosage: INTRAOPERATIVE DOSE
     Route: 042
  10. KETOROLAC [Concomitant]
     Active Substance: KETOROLAC TROMETHAMINE
     Dosage: INTRAOPERATIVE DOSE FOR 65 YR OR OLDER OR LESS THAN 50 KG
     Route: 042
  11. KETOROLAC [Concomitant]
     Active Substance: KETOROLAC TROMETHAMINE
     Dosage: UNTIL DISCHARGE
     Route: 042
  12. KETOROLAC [Concomitant]
     Active Substance: KETOROLAC TROMETHAMINE
     Dosage: UNTIL DISCHARGE FOR 65 YR OR OLDER OR LESS THAN 50 KG
     Route: 042
  13. ACETAMINOPHEN [Concomitant]
     Active Substance: ACETAMINOPHEN
     Dosage: UPON PACU ARRIVAL
     Route: 042
  14. ACETAMINOPHEN [Concomitant]
     Active Substance: ACETAMINOPHEN
     Dosage: UPON PACU ARRIVAL IF LESS THAN 50 KG
     Route: 042
  15. TRAMADOL [Concomitant]
     Active Substance: TRAMADOL
     Dosage: AS NEEDED, MILD PAIN
     Route: 065
  16. TRAMADOL [Concomitant]
     Active Substance: TRAMADOL
     Dosage: AS NEEDED, MODERATE PAIN
     Route: 065
  17. TRAMADOL [Concomitant]
     Active Substance: TRAMADOL
     Dosage: AS NEEDED, MODERATE PAIN IF LESS THAN 50 KG
     Route: 065
  18. OXYCODONE [Concomitant]
     Active Substance: OXYCODONE
     Dosage: AS NEEDED, SEVERE PAIN
     Route: 065
  19. HYDROMORPHONE [Concomitant]
     Active Substance: HYDROMORPHONE
     Dosage: EVERY 15 MINUTES UP TO 1 MG
     Route: 042
  20. NAPROXEN [Concomitant]
     Active Substance: NAPROXEN
     Dosage: AT DISCHARGE
     Route: 065
  21. Oxycodone?acetaminophen [Concomitant]
     Dosage: AS NEEDED
     Route: 065

REACTIONS (1)
  - Horner^s syndrome [Unknown]
